FAERS Safety Report 5605856-2 (Version None)
Quarter: 2008Q1

REPORT INFORMATION
  Report Type: 
  Country: None (occurrence: None)
  Receive Date: 20080129
  Receipt Date: 20080122
  Transmission Date: 20080703
  Serious: Yes (Other)
  Sender: FDA-Public Use
  Company Number: PHNU2008DE00663

PATIENT
  Sex: Female

DRUGS (2)
  1. LEPONEX [Suspect]
     Route: 048
     Dates: start: 19980101
  2. DIPIPERON [Concomitant]

REACTIONS (2)
  - AMENORRHOEA [None]
  - HYPERPROLACTINAEMIA [None]
